FAERS Safety Report 14584783 (Version 1)
Quarter: 2018Q1

REPORT INFORMATION
  Report Type: Spontaneous
  Country: JP (occurrence: JP)
  Receive Date: 20180301
  Receipt Date: 20180301
  Transmission Date: 20180509
  Serious: Yes (Other)
  Sender: FDA-Public Use
  Company Number: JP-BION-007000

PATIENT
  Age: 71 Year
  Sex: Male

DRUGS (2)
  1. VALPROIC ACID. [Concomitant]
     Active Substance: VALPROIC ACID
     Indication: EPILEPSY
  2. ZONISAMIDE. [Suspect]
     Active Substance: ZONISAMIDE
     Indication: SEIZURE

REACTIONS (4)
  - Pneumonia [Recovering/Resolving]
  - Atelectasis [Recovering/Resolving]
  - Toxic epidermal necrolysis [Recovered/Resolved]
  - Human herpesvirus 6 infection [Unknown]
